FAERS Safety Report 12877774 (Version 3)
Quarter: 2017Q1

REPORT INFORMATION
  Report Type: Spontaneous
  Country: US (occurrence: US)
  Receive Date: 20161024
  Receipt Date: 20170322
  Transmission Date: 20170428
  Serious: No
  Sender: FDA-Public Use
  Company Number: US-PFIZER INC-2016492012

PATIENT
  Age: 71 Year
  Sex: Male
  Weight: 98 kg

DRUGS (23)
  1. RAPAMUNE [Suspect]
     Active Substance: SIROLIMUS
     Dosage: 1 MG, UNK
     Route: 048
     Dates: start: 20161011
  2. AMLODIPINE BESILATE [Concomitant]
     Active Substance: AMLODIPINE BESYLATE
     Indication: BLOOD PRESSURE ABNORMAL
     Dosage: 2.5 MG, DAILY (2.5MG ONE AT NOON)
     Dates: start: 20140930
  3. VITAMIN D3 [Concomitant]
     Active Substance: CHOLECALCIFEROL
     Indication: NUTRITIONAL SUPPLEMENTATION
     Dosage: 2000 IU, DAILY (2,000 IU ONE DAY)
  4. RAPAMUNE [Suspect]
     Active Substance: SIROLIMUS
     Dosage: 1 MG, DAILY
  5. ALENDRONATE [Concomitant]
     Active Substance: ALENDRONATE SODIUM
     Indication: CALCIUM METABOLISM DISORDER
     Dosage: 35 MG, WEEKLY (35MG ONCE A WEEK BEFORE ANYTHING TO EAT)
     Dates: start: 20140930
  6. LANTUS [Concomitant]
     Active Substance: INSULIN GLARGINE
     Indication: DIABETES MELLITUS
     Dosage: UNK UNK, DAILY (11 UNITS AT BEDTIME)
     Dates: start: 20100214
  7. FERROUS SULFATE. [Concomitant]
     Active Substance: FERROUS SULFATE
     Dosage: 325 MG, 2X/DAY (1-325MG TABELT TWICE A DAY)
     Dates: start: 20130414, end: 20170214
  8. ROSUVASTATIN. [Concomitant]
     Active Substance: ROSUVASTATIN
     Indication: CARDIOMYOPATHY
     Dosage: 10 MG, DAILY (10MG ONE A DAY)
     Dates: start: 20140930
  9. CETIRIZINE [Concomitant]
     Active Substance: CETIRIZINE HYDROCHLORIDE
     Indication: HYPERSENSITIVITY
  10. NOVOLOG [Concomitant]
     Active Substance: INSULIN ASPART
     Indication: DIABETES MELLITUS
     Dosage: UNK UNK, 3X/DAY (SLIDING SCALE 3 TIMES A DAY)
     Dates: start: 20100214
  11. RAPAMUNE [Suspect]
     Active Substance: SIROLIMUS
     Dosage: 2 MG, DAILY (2-1MG TABLETS A DAY)
     Route: 048
  12. ASPIRIN. [Concomitant]
     Active Substance: ASPIRIN
     Dosage: 81 MG, 1X/DAY (1-81MG A DAY)
     Dates: start: 20130414
  13. BACTRIM [Concomitant]
     Active Substance: SULFAMETHOXAZOLE\TRIMETHOPRIM
     Dosage: UNK UNK, DAILY ([SULFAMETHOXAZOLE 400MG] / TRIMETHOPRIM 80MG] ONE EVERY MORNING)
     Dates: start: 20130414
  14. LANSOPRAZOLE. [Concomitant]
     Active Substance: LANSOPRAZOLE
     Indication: GASTROOESOPHAGEAL REFLUX DISEASE
     Dosage: 30 MG, 2X/DAY (30MG TABLET 1 IN THE AM AND 1 IN THE EVENING)
     Dates: start: 20100214
  15. LISINOPRIL. [Concomitant]
     Active Substance: LISINOPRIL
     Indication: BLOOD PRESSURE ABNORMAL
     Dosage: 5 MG, 2X/DAY (5MG, ONE IN THE AM AND ONE IN THE PM)
     Dates: end: 20161205
  16. VITAMIN D [Concomitant]
     Active Substance: CHOLECALCIFEROL
     Indication: VITAMIN SUPPLEMENTATION
     Dosage: 50000 MG, WEEKLY (50,000MG ONE A WEEK)
     Dates: start: 20130414
  17. RAPAMUNE [Suspect]
     Active Substance: SIROLIMUS
     Indication: CARDIAC HYPERTROPHY
     Dosage: 1 MG, DAILY
     Dates: start: 20160921
  18. RAPAMUNE [Suspect]
     Active Substance: SIROLIMUS
     Dosage: 3 MG, 1X/DAY
     Dates: start: 20161205
  19. PROGRAF [Concomitant]
     Active Substance: TACROLIMUS\TACROLIMUS ANHYDROUS
     Indication: TRANSPLANT REJECTION
     Dosage: 3 MG, 2X/DAY (3MG IN THE AM AND 3MG IN THE PM)
     Dates: start: 20140913
  20. VITAMIN D3 [Concomitant]
     Active Substance: CHOLECALCIFEROL
     Dosage: UNK
     Dates: start: 20130414
  21. CETIRIZINE [Concomitant]
     Active Substance: CETIRIZINE HYDROCHLORIDE
     Indication: SEASONAL ALLERGY
     Dosage: 10 MG, 1X/DAY
     Dates: start: 20130730
  22. AZATHIOPRINE. [Concomitant]
     Active Substance: AZATHIOPRINE
     Indication: TRANSPLANT REJECTION
     Dosage: 100 MG, DAILY (50MG, 2 AT 6 IN THE AFTERNOON)
     Dates: start: 20140930
  23. VITAMIN E /00110501/ [Concomitant]
     Active Substance: TOCOPHEROL
     Indication: NUTRITIONAL SUPPLEMENTATION
     Dosage: 600/400, 2 OF THEM AT NOON

REACTIONS (2)
  - Blood count abnormal [Recovered/Resolved]
  - Product use issue [Recovered/Resolved]

NARRATIVE: CASE EVENT DATE: 20160921
